FAERS Safety Report 9296255 (Version 3)
Quarter: 2014Q2

REPORT INFORMATION
  Report Type: Spontaneous
  Country: US (occurrence: US)
  Receive Date: 20130517
  Receipt Date: 20140425
  Transmission Date: 20141212
  Serious: Yes (Death, Hospitalization)
  Sender: FDA-Public Use
  Company Number: US-B.I. PHARMACEUTICALS,INC./RIDGEFIELD-2013-BI-13712BP

PATIENT
  Age: 51 Year
  Sex: Male
  Weight: 108.86 kg

DRUGS (17)
  1. PRADAXA [Suspect]
     Indication: ATRIAL FIBRILLATION
     Dosage: 300 MG
     Route: 048
     Dates: start: 20110427, end: 20110520
  2. LASIX [Concomitant]
     Route: 065
  3. NIFEDIPINE ER [Concomitant]
     Route: 065
  4. LISINOPRIL [Concomitant]
     Route: 065
     Dates: start: 2009, end: 2011
  5. GLYBURIDE [Concomitant]
     Dosage: 5 MG
     Route: 065
     Dates: start: 2009
  6. METFORMIN [Concomitant]
     Dosage: 1000 MG
     Route: 065
  7. LOVASTATIN [Concomitant]
     Route: 065
     Dates: start: 2009, end: 2011
  8. SPIRONOLACTONE [Concomitant]
     Route: 065
  9. DILTIAZEM [Concomitant]
     Route: 065
  10. POTASSIUM CHLORIDE [Concomitant]
     Dosage: 20 MEQ
     Route: 065
  11. LANTUS SOLOSTAR INJ [Concomitant]
     Route: 065
  12. B-D UF III SHORT PEN ND [Concomitant]
     Route: 065
  13. MULTAQ [Concomitant]
     Dosage: 800 MG
     Route: 048
     Dates: start: 201104
  14. METOLAZONE [Concomitant]
     Dosage: 5 MG
     Route: 065
  15. CLEOCIN [Concomitant]
     Dosage: 1200 MG
     Route: 048
  16. LIPITOR [Concomitant]
     Dosage: 20 MG
     Route: 048
  17. HYDROCHLOROTHIAZIDE [Concomitant]
     Route: 065

REACTIONS (4)
  - Haemorrhage intracranial [Fatal]
  - Cerebral haematoma [Fatal]
  - Renal failure acute [Unknown]
  - Upper gastrointestinal haemorrhage [Unknown]
